FAERS Safety Report 17232867 (Version 3)
Quarter: 2020Q1

REPORT INFORMATION
  Report Type: Report from Study
  Country: US (occurrence: US)
  Receive Date: 20200103
  Receipt Date: 20200130
  Transmission Date: 20200409
  Serious: Yes (Other)
  Sender: FDA-Public Use
  Company Number: US-BAUSCH-BL-2019-066700

PATIENT
  Age: 52 Year
  Sex: Female

DRUGS (3)
  1. SILIQ [Suspect]
     Active Substance: BRODALUMAB
     Indication: PSORIASIS
     Dosage: 210/1.5 MG/ML INJECTION AT WEEKS 0, 1, AND 2; PRE-FILLED SYRINGE
     Route: 058
     Dates: start: 20191213, end: 201912
  2. TRIAMCINOLONE [Concomitant]
     Active Substance: TRIAMCINOLONE
     Indication: DERMATITIS
     Dates: start: 2019
  3. SILIQ [Suspect]
     Active Substance: BRODALUMAB
     Dosage: 210/1.5 MG/ML INJECTION EVERY 2 WEEKS; PRE-FILLED SYRINGE
     Route: 058
     Dates: start: 201912, end: 202001

REACTIONS (5)
  - Skin disorder [Not Recovered/Not Resolved]
  - Drug hypersensitivity [Not Recovered/Not Resolved]
  - Pruritus [Not Recovered/Not Resolved]
  - Condition aggravated [Not Recovered/Not Resolved]
  - Urticaria [Not Recovered/Not Resolved]

NARRATIVE: CASE EVENT DATE: 201912
